FAERS Safety Report 25940130 (Version 2)
Quarter: 2025Q4

REPORT INFORMATION
  Report Type: Spontaneous
  Country: JP (occurrence: JP)
  Receive Date: 20251020
  Receipt Date: 20251024
  Transmission Date: 20260117
  Serious: Yes (Other)
  Sender: AMGEN
  Company Number: JP-DSJP-DS-2025-169797-

PATIENT
  Age: 32 Year
  Sex: Female

DRUGS (1)
  1. DENOSUMAB [Suspect]
     Active Substance: DENOSUMAB
     Indication: Bone giant cell tumour
     Dosage: UNK
     Route: 065

REACTIONS (3)
  - Medically induced preterm birth [Unknown]
  - Contraindicated product administered [Unknown]
  - Maternal exposure during pregnancy [Unknown]
